FAERS Safety Report 5637207-1 (Version None)
Quarter: 2008Q1

REPORT INFORMATION
  Report Type: 
  Country: None (occurrence: None)
  Receive Date: 20080225
  Receipt Date: 20080214
  Transmission Date: 20080703
  Serious: Yes (Death, Hospitalization)
  Sender: FDA-Public Use
  Company Number: FR-AVENTIS-200810667FR

PATIENT
  Age: 73 Year
  Sex: Female
  Weight: 65 kg

DRUGS (14)
  1. LOVENOX [Suspect]
     Indication: ACUTE CORONARY SYNDROME
     Route: 058
     Dates: start: 19990601
  2. LOVENOX [Suspect]
     Route: 058
     Dates: start: 19990601
  3. PLAVIX [Suspect]
     Indication: ACUTE CORONARY SYNDROME
     Route: 048
     Dates: start: 19990625, end: 19990625
  4. PLAVIX [Suspect]
     Route: 048
     Dates: start: 19990601
  5. PLAVIX [Suspect]
     Route: 048
     Dates: start: 19990625, end: 19990625
  6. PLAVIX [Suspect]
     Route: 048
     Dates: start: 19990601
  7. ASPIRIN [Suspect]
     Indication: ACUTE CORONARY SYNDROME
     Route: 048
     Dates: start: 19990625
  8. ASPIRIN [Suspect]
     Route: 048
     Dates: start: 19990625
  9. HEPARIN SODIUM [Suspect]
     Indication: ACUTE CORONARY SYNDROME
     Route: 042
     Dates: start: 19990625
  10. HEPARIN SODIUM [Suspect]
     Route: 042
     Dates: start: 19990625
  11. LASILIX                            /00032601/ [Concomitant]
  12. TRIATEC                            /00885601/ [Concomitant]
     Route: 048
  13. SECTRAL [Concomitant]
  14. CORDARONE [Concomitant]

REACTIONS (3)
  - ANAEMIA [None]
  - CEREBRAL ARTERY EMBOLISM [None]
  - HAEMATURIA [None]
